FAERS Safety Report 7030267 (Version 5)
Quarter: 2013Q2

REPORT INFORMATION
  Report Type: Spontaneous
  Country: US (occurrence: US)
  Receive Date: 20090623
  Receipt Date: 20130410
  Transmission Date: 20140414
  Serious: Yes (Other)
  Sender: FDA-Public Use
  Company Number: US-ROCHE-638810

PATIENT
  Age: 57 Year
  Sex: Female
  Weight: 59 kg

DRUGS (20)
  1. BONIVA [Suspect]
     Indication: OSTEOPOROSIS
     Route: 048
     Dates: start: 20061214, end: 20090510
  2. INSULIN [Concomitant]
     Indication: TYPE 1 DIABETES MELLITUS
     Route: 058
  3. INSULIN [Concomitant]
     Dosage: DRUG: INSULIN PURIFIED REGULAR (PORK) SOLN
     Route: 058
  4. PREMARIN [Concomitant]
     Indication: OSTEOPOROSIS
     Dosage: DOSE: 0.9 (UNIT NOT REPORTED), PER DAY
     Route: 048
  5. PREMARIN [Concomitant]
     Dosage: QUANTITY: 90, REFILLS: 3; AS DIRECTED.
     Route: 048
  6. SYNTHROID [Concomitant]
     Indication: HYPOTHYROIDISM
     Dosage: DOSE: 0.075 (UNIT NOT REPORTED), PER DAY
     Route: 048
  7. SYNTHROID [Concomitant]
     Route: 048
  8. LISINOPRIL [Concomitant]
     Indication: HYPERTENSION
     Dosage: DOSE: 20 (UNIT NOT REPORTED), PER DAY
     Route: 048
  9. LISINOPRIL [Concomitant]
     Route: 048
  10. CELEBREX [Concomitant]
     Indication: OSTEOARTHRITIS
     Dosage: DOSE: 200 (UNIT NOT REPORTED), PER DAY
     Route: 048
  11. CELEBREX [Concomitant]
     Dosage: QUANTITY: 90, REFILLS: 3
     Route: 048
  12. CYCLOBENZAPRINE HYDROCHLORIDE [Concomitant]
     Dosage: DRUG: CYCLOBENZAPRINE HCL 5 MG TABLET, QUANTITY: 180, REFILLS: 3
     Route: 065
  13. DRISDOL [Concomitant]
     Dosage: DRUG: DRISDOL 50000 UNIT CAPSULE.
     Route: 065
  14. HUMALOG [Concomitant]
     Dosage: DRUG: HUMALOG 100 U/ML SOLUTION, QUANTITY: 90
     Route: 065
  15. NASONEX [Concomitant]
     Dosage: DRUG: NASONEX 50 MCG/ACT SUSPENSION, DOSAGE REPORTED AS: 2 SPRAYS IN EACH NOSTRIL, QTY: 1, REFILL: 4
     Route: 065
  16. PROMETHAZINE HYDROCHLORIDE [Concomitant]
     Indication: NAUSEA
     Dosage: AS NEEDED., DRUG: PROMETHAZINE HCL,  QUANTITY: 30
     Route: 065
  17. SULFAMETHOXAZOLE/TRIMETHOPRIM [Concomitant]
     Dosage: STRENGTH REPORTED AS 800-160 MG, DOSAGE REPORTED AS 1 TABLET TWICE DAILY UNTIL FINISHED, QTY: 30
     Route: 065
  18. TERBINAFINE HCL [Concomitant]
     Dosage: AS DIRECTED. QTY: 90.
     Route: 065
  19. TRIAZ [Concomitant]
     Dosage: FREQUENCY: ONE OR TWICE DAILY, QUANTITY: 340.2, REFILL: 2.
     Route: 065
  20. VANIQA [Concomitant]
     Dosage: QUANTITY: 30, REFILL: 6.
     Route: 065

REACTIONS (2)
  - Femur fracture [Unknown]
  - Femur fracture [Unknown]
